FAERS Safety Report 15715070 (Version 2)
Quarter: 2019Q1

REPORT INFORMATION
  Report Type: Spontaneous
  Country: BR (occurrence: BR)
  Receive Date: 20181212
  Receipt Date: 20190226
  Transmission Date: 20190417
  Serious: Yes (Other)
  Sender: FDA-Public Use
  Company Number: PHHY2018BR180668

PATIENT
  Sex: Male

DRUGS (1)
  1. LACRIMA PLUS (ALC) [Suspect]
     Active Substance: DEXTRAN 70\HYPROMELLOSES
     Indication: PRODUCT USED FOR UNKNOWN INDICATION
     Route: 047

REACTIONS (4)
  - Cardiac disorder [Unknown]
  - Visual impairment [Unknown]
  - Cataract [Unknown]
  - Liquid product physical issue [Unknown]
